FAERS Safety Report 4937863-7 (Version None)
Quarter: 2006Q1

REPORT INFORMATION
  Report Type: 
  Country: None (occurrence: None)
  Receive Date: 20060308
  Receipt Date: 20060308
  Transmission Date: 20060701
  Serious: Yes (Hospitalization, Disabling)
  Sender: FDA-Public Use
  Company Number: None

PATIENT
  Sex: Male

DRUGS (3)
  1. CYTOXAN [Suspect]
     Indication: PROSTATE CANCER
     Dosage: 763MG
     Dates: start: 20051214, end: 20051216
  2. FLUDARABINE [Suspect]
     Indication: PROSTATE CANCER
     Dosage: 44MG IV QD X 3D
     Route: 042
     Dates: start: 20051214, end: 20051216
  3. GVAX VACCINE [Suspect]
     Indication: PROSTATE CANCER
     Dosage: 6.4/3.6ML SQ EVERY 2 W
     Route: 058
     Dates: start: 20051220, end: 20060103

REACTIONS (7)
  - APHASIA [None]
  - BALANCE DISORDER [None]
  - CEREBROVASCULAR ACCIDENT [None]
  - COGNITIVE DISORDER [None]
  - MEMORY IMPAIRMENT [None]
  - PLATELET COUNT DECREASED [None]
  - SPEECH DISORDER [None]
